FAERS Safety Report 18816563 (Version 2)
Quarter: 2022Q4

REPORT INFORMATION
  Report Type: Spontaneous
  Country: JP (occurrence: JP)
  Receive Date: 20210201
  Receipt Date: 20221116
  Transmission Date: 20230113
  Serious: Yes (Death, Hospitalization, Other)
  Sender: FDA-Public Use
  Company Number: JP-BAYER-2021-034743

PATIENT
  Age: 68 Year
  Sex: Female
  Weight: 38 kg

DRUGS (7)
  1. STIVARGA [Suspect]
     Active Substance: REGORAFENIB
     Indication: Colon cancer
     Dosage: 3 DF, QD
     Route: 048
     Dates: start: 20201205, end: 20201217
  2. HYDROMORPHONE HYDROCHLORIDE [Concomitant]
     Active Substance: HYDROMORPHONE HYDROCHLORIDE
  3. HYDROMORPHONE HYDROCHLORIDE [Concomitant]
     Active Substance: HYDROMORPHONE HYDROCHLORIDE
  4. SYMPROIC [Concomitant]
     Active Substance: NALDEMEDINE
  5. NEXIUM I.V. [Concomitant]
     Active Substance: ESOMEPRAZOLE SODIUM
  6. LOXOPROFEN [Concomitant]
     Active Substance: LOXOPROFEN
  7. DOMPERIDONE [Concomitant]
     Active Substance: DOMPERIDONE

REACTIONS (18)
  - Acute hepatic failure [Fatal]
  - Drug eruption [Not Recovered/Not Resolved]
  - Hypophagia [Fatal]
  - Pyrexia [Fatal]
  - Erythema [Not Recovered/Not Resolved]
  - Altered state of consciousness [Fatal]
  - Memory impairment [Fatal]
  - Speech disorder [Fatal]
  - Purpura [Not Recovered/Not Resolved]
  - Palmar erythema [Not Recovered/Not Resolved]
  - Plantar erythema [Not Recovered/Not Resolved]
  - Skin erosion [Not Recovered/Not Resolved]
  - Hypoglycaemia [Fatal]
  - Depressed level of consciousness [Fatal]
  - Mouth breathing [Fatal]
  - Pain [Fatal]
  - Respiratory arrest [Fatal]
  - Cardio-respiratory arrest [Fatal]

NARRATIVE: CASE EVENT DATE: 20201215
